FAERS Safety Report 8800134 (Version 3)
Quarter: 2015Q1

REPORT INFORMATION
  Report Type: Report from Study
  Country: US (occurrence: US)
  Receive Date: 20120921
  Receipt Date: 20150310
  Transmission Date: 20150721
  Serious: Yes (Death)
  Sender: FDA-Public Use
  Company Number: US-ROCHE-1123201

PATIENT
  Sex: Female

DRUGS (3)
  1. AVASTIN [Suspect]
     Active Substance: BEVACIZUMAB
     Indication: MALIGNANT PERITONEAL NEOPLASM
     Dosage: RECEIVED ON 12/SEP/2008, 03/OCT/2008, 24/OCT/2008, 15 MG/KG IN 100 ML NORMAL SALINE INFUSED OVER 30
     Route: 042
  2. NAB-PACLITAXEL [Concomitant]
     Active Substance: PACLITAXEL
     Dosage: RECEIVED ON 19/SEP/2008, 26/SEP/2008, 03/OCT/2008, 17/OCT/2008 AND 24/OCT/2008
     Route: 042
  3. PROCRIT [Concomitant]
     Active Substance: ERYTHROPOIETIN
     Dosage: RECEIVED ON 12/SEP/2008, 19/SEP/2008, 26/SEP/2008, 03/OCT/2008, 10/OCT/2008
     Route: 065

REACTIONS (2)
  - Disease progression [Fatal]
  - Off label use [Unknown]
